FAERS Safety Report 6472769-6 (Version None)
Quarter: 2009Q4

REPORT INFORMATION
  Report Type: 
  Country: None (occurrence: None)
  Receive Date: 20091201
  Receipt Date: 20091119
  Transmission Date: 20100525
  Serious: Yes (Death)
  Sender: FDA-Public Use
  Company Number: 2009SE0043

PATIENT

DRUGS (1)
  1. ORFADIN [Suspect]
     Indication: TYROSINAEMIA
     Dosage: 4 MG (2 MG, 2 IN 1 D)
     Dates: start: 20090101, end: 20090101

REACTIONS (1)
  - DEATH [None]
